FAERS Safety Report 8476636 (Version 4)
Quarter: 2013Q4

REPORT INFORMATION
  Report Type: Spontaneous
  Country: US (occurrence: US)
  Receive Date: 20120326
  Receipt Date: 20131031
  Transmission Date: 20140711
  Serious: Yes (Hospitalization, Other)
  Sender: FDA-Public Use
  Company Number: US-MSD-1203USA01874

PATIENT
  Sex: Female

DRUGS (21)
  1. ZETIA [Suspect]
     Dosage: 10 MG, QD
     Route: 048
  2. CALAN [Suspect]
     Dosage: 120 MG, QD
  3. COUMADIN [Concomitant]
     Dosage: 2 MG, QD
  4. AVAPRO [Concomitant]
     Dosage: 75 MG, QD
  5. BYSTOLIC [Concomitant]
     Dosage: 2.5 MG, QD
  6. ALLEGRA [Concomitant]
     Dosage: 60 MG, BID
  7. ANUSOL (BISMUTH SUBGALLATE (+) PRAMOXINE HYDROCHLORIDE) [Concomitant]
     Dosage: UNK UNK, PRN
  8. CALCIUM (UNSPECIFIED) [Concomitant]
     Dosage: 1200 MG, QD
  9. CHOLECALCIFEROL [Concomitant]
     Dosage: 1000 IU, QD
  10. MK-9278 [Concomitant]
     Dosage: UNK UNK, QD
  11. ASCORBIC ACID [Concomitant]
     Dosage: 500 MG, QD
  12. VITAMIN B COMPLEX [Concomitant]
     Dosage: UNK UNK, QD
  13. XANAX [Suspect]
  14. MAXIDE [Concomitant]
     Dosage: 25 MG, QD
  15. PLAQUENIL [Concomitant]
     Dosage: 200 MG, BID
  16. MACROBID (CLARITHROMYCIN) [Concomitant]
     Dosage: 100 MG, QD
  17. LYRICA [Suspect]
     Dosage: 75 MG, UNK
  18. LYRICA [Suspect]
     Dosage: 50 MG, UNK
  19. ANTIVERT (MECLIZINE HYDROCHLORIDE) [Suspect]
     Dosage: 25 MG, PRN
  20. SYNCOL [Concomitant]
     Indication: MUSCLE SPASMS
     Dosage: 0.125 MG, PRN
  21. ZOLOFT [Suspect]

REACTIONS (5)
  - Cardiac disorder [Unknown]
  - Nephrolithiasis [Unknown]
  - Urticaria chronic [Unknown]
  - Hypersensitivity [Unknown]
  - Chest pain [Unknown]
